FAERS Safety Report 6441860 (Version 27)
Quarter: 2014Q3

REPORT INFORMATION
  Report Type: Spontaneous
  Country: US (occurrence: US)
  Receive Date: 20071015
  Receipt Date: 20140715
  Transmission Date: 20150326
  Serious: Yes (Life-Threatening, Other)
  Sender: FDA-Public Use
  Company Number: PHEH2007US13316

PATIENT
  Sex: Male

DRUGS (40)
  1. ZOMETA [Suspect]
     Active Substance: ZOLEDRONIC ACID
     Indication: METASTASES TO BONE
     Dosage: UNK UNK, QMO
     Route: 041
     Dates: end: 2006
  2. DECADRON [Concomitant]
     Active Substance: DEXAMETHASONE
     Dosage: 40 MG, UNK
     Dates: start: 200201, end: 200708
  3. LORTAB [Concomitant]
     Active Substance: ACETAMINOPHEN\HYDROCODONE BITARTRATE
  4. LISINOPRIL. [Concomitant]
     Active Substance: LISINOPRIL
     Dosage: 20 MG, 0/4
     Dates: start: 20051107, end: 20060228
  5. ZOMETA [Suspect]
     Active Substance: ZOLEDRONIC ACID
     Indication: PROPHYLAXIS
  6. ATIVAN [Suspect]
     Active Substance: LORAZEPAM
  7. NEURONTIN [Concomitant]
     Active Substance: GABAPENTIN
  8. VINCRISTINE + ADRIAMYCIN + DEXAMETHASONE [Concomitant]
     Dates: end: 200201
  9. ORAMORPH SR SUSTAINED RELEASE [Concomitant]
     Active Substance: MORPHINE SULFATE
  10. ANTIBIOTICS [Concomitant]
     Active Substance: UNSPECIFIED INGREDIENT
  11. HYDROCHLOROTHIAZIDE. [Concomitant]
     Active Substance: HYDROCHLOROTHIAZIDE
     Dosage: 25 MG, 4/4
     Dates: start: 20050428, end: 20060421
  12. METHADONE [Suspect]
     Active Substance: METHADONE HYDROCHLORIDE
  13. CASODEX [Concomitant]
     Active Substance: BICALUTAMIDE
     Dosage: 50 MG, 3/4
     Dates: start: 20050517, end: 20050823
  14. CASODEX [Concomitant]
     Active Substance: BICALUTAMIDE
     Dosage: 50 MG, 0/3
     Dates: start: 20051014, end: 20051129
  15. LISINOPRIL. [Concomitant]
     Active Substance: LISINOPRIL
     Dosage: 20 MG, 2/4
     Route: 048
     Dates: start: 20050428, end: 20051107
  16. MEGACE [Concomitant]
     Active Substance: MEGESTROL ACETATE
     Dosage: 40 MG, BID, 3/4
     Dates: start: 20051108, end: 20060206
  17. METOPROLOL [Concomitant]
     Active Substance: METOPROLOL
  18. RANITIDINE [Concomitant]
     Active Substance: RANITIDINE\RANITIDINE HYDROCHLORIDE
  19. CYTOXAN [Concomitant]
     Active Substance: CYCLOPHOSPHAMIDE
  20. LUPRON [Concomitant]
     Active Substance: LEUPROLIDE ACETATE
  21. ZOLADEX [Concomitant]
     Active Substance: GOSERELIN ACETATE
     Dosage: 10.8 MG, UNK
  22. HYDROCHLOROTHIAZIDE. [Concomitant]
     Active Substance: HYDROCHLOROTHIAZIDE
     Dosage: 25 MG, 3/4
     Dates: start: 20060421, end: 20070421
  23. PERIDEX [Concomitant]
     Active Substance: CHLORHEXIDINE GLUCONATE
  24. OXYCONTIN [Concomitant]
     Active Substance: OXYCODONE HYDROCHLORIDE
  25. EFFEXOR [Concomitant]
     Active Substance: VENLAFAXINE HYDROCHLORIDE
  26. DURAGESIC [Concomitant]
     Active Substance: FENTANYL
  27. FENTANYL. [Concomitant]
     Active Substance: FENTANYL
     Dosage: 50 UG, UNK
     Dates: start: 20050617, end: 20060414
  28. PERCOCET [Concomitant]
     Active Substance: ACETAMINOPHEN\OXYCODONE HYDROCHLORIDE
     Indication: PAIN
     Dosage: 5 / 325 QID PRN
  29. AREDIA [Suspect]
     Active Substance: PAMIDRONATE DISODIUM
     Dates: start: 2002, end: 200405
  30. FLUZONE [Concomitant]
     Active Substance: INFLUENZA A VIRUS A/CALIFORNIA/7/2009 X-179A (H1N1) ANTIGEN (FORMALDEHYDE INACTIVATED)\INFLUENZA A VIRUS A/VICTORIA/210/2009 X-187 (H3N2) ANTIGEN (FORMALDEHYDE INACTIVATED)\INFLUENZA B VIRUS B/BRISBANE/60/2008 ANTIGEN (FORMALDEHYDE INACTIVATED)
     Dosage: 0.5 ML, UNK
  31. FLEXERIL [Concomitant]
     Active Substance: CYCLOBENZAPRINE HYDROCHLORIDE
  32. MEGACE [Concomitant]
     Active Substance: MEGESTROL ACETATE
     Dosage: 40 MG, BID, 1/4
     Dates: start: 20060206, end: 20060801
  33. TERBINAFINE [Concomitant]
     Active Substance: TERBINAFINE
  34. REVLIMID [Concomitant]
     Active Substance: LENALIDOMIDE
     Dosage: 25 MG, QD
  35. AUGMENTIN [Concomitant]
     Active Substance: AMOXICILLIN\CLAVULANATE POTASSIUM
     Dosage: 875 MG, BID
  36. CASODEX [Concomitant]
     Active Substance: BICALUTAMIDE
     Dosage: 50 MG, 1/3
     Dates: start: 20050823, end: 20051014
  37. MEGACE [Concomitant]
     Active Substance: MEGESTROL ACETATE
     Dosage: 40 MG, BID, 4/6
     Dates: start: 20050406, end: 20051108
  38. MOTRIN [Concomitant]
     Active Substance: IBUPROFEN
     Dosage: 600 MG, QID, PRN
  39. IBUPROFEN. [Concomitant]
     Active Substance: IBUPROFEN
  40. ENDOCET [Concomitant]
     Active Substance: ACETAMINOPHEN\OXYCODONE HYDROCHLORIDE
     Dosage: 5 MG-325 MG
     Route: 048
     Dates: start: 20050617, end: 20060414

REACTIONS (131)
  - Hypoaesthesia [Unknown]
  - Bone loss [Unknown]
  - Onychomycosis [Unknown]
  - Pulmonary mass [Unknown]
  - Gastrooesophageal reflux disease [Unknown]
  - Chronic sinusitis [Unknown]
  - Left atrial dilatation [Unknown]
  - Bladder outlet obstruction [Unknown]
  - Hot flush [Unknown]
  - Back pain [Unknown]
  - Hypertrophy [Unknown]
  - Depression [Unknown]
  - Ligament disorder [Unknown]
  - Restlessness [Unknown]
  - Hypotension [Unknown]
  - Gingivitis [Unknown]
  - Contusion [Unknown]
  - Eye swelling [Unknown]
  - Hypokalaemia [Unknown]
  - Swollen tongue [Unknown]
  - Abscess [Unknown]
  - Paraesthesia [Unknown]
  - Pain in jaw [Unknown]
  - Emphysema [Unknown]
  - Erectile dysfunction [Unknown]
  - Spinal osteoarthritis [Unknown]
  - Haemorrhoids [Unknown]
  - Haemoptysis [Unknown]
  - Nocturia [Unknown]
  - Swelling face [Unknown]
  - Rotator cuff syndrome [Unknown]
  - Cellulitis [Unknown]
  - Gingival pain [Unknown]
  - Bone disorder [Unknown]
  - Primary sequestrum [Unknown]
  - Poor quality sleep [Unknown]
  - Epistaxis [Unknown]
  - Arthritis [Unknown]
  - Mental status changes [Unknown]
  - Tendonitis [Unknown]
  - Lumbar spinal stenosis [Unknown]
  - Flank pain [Unknown]
  - Bone swelling [Unknown]
  - Suicide attempt [Unknown]
  - Aortic arteriosclerosis [Unknown]
  - Neuropathy peripheral [Unknown]
  - Aortic valve incompetence [Unknown]
  - Bone pain [Unknown]
  - Constipation [Unknown]
  - Aortic valve stenosis [Unknown]
  - Renal cyst [Unknown]
  - Osteosclerosis [Unknown]
  - Inguinal hernia [Unknown]
  - Renal failure acute [Unknown]
  - Psychotic disorder [Unknown]
  - Hyperhidrosis [Unknown]
  - Angioedema [Unknown]
  - Breath odour [Unknown]
  - Confusional state [Unknown]
  - Metabolic acidosis [Unknown]
  - Fatigue [Unknown]
  - Night sweats [Unknown]
  - Compression fracture [Unknown]
  - Nephrolithiasis [Unknown]
  - Diverticulum [Unknown]
  - Arteriosclerosis [Unknown]
  - Infection [Unknown]
  - Kyphosis [Unknown]
  - Prostate cancer metastatic [Recovering/Resolving]
  - Insomnia [Unknown]
  - Syncope [Unknown]
  - Headache [Unknown]
  - Metastases to bone [Unknown]
  - Bursitis [Unknown]
  - Cyst [Unknown]
  - Faeces discoloured [Unknown]
  - Cardiac failure congestive [Unknown]
  - Left ventricular hypertrophy [Unknown]
  - Hypertension [Unknown]
  - Pollakiuria [Unknown]
  - Musculoskeletal pain [Unknown]
  - Axillary pain [Unknown]
  - Pulmonary hypertension [Unknown]
  - Bone lesion [Unknown]
  - Disability [Unknown]
  - Cardiac murmur [Unknown]
  - Transaminases increased [Unknown]
  - Haematemesis [Unknown]
  - Vascular calcification [Unknown]
  - Deformity [Unknown]
  - Skin swelling [Unknown]
  - Haematochezia [Recovering/Resolving]
  - Mitral valve calcification [Unknown]
  - Osteoarthritis [Unknown]
  - Rectal haemorrhage [Unknown]
  - Penile swelling [Unknown]
  - Intervertebral disc space narrowing [Unknown]
  - Intervertebral disc degeneration [Unknown]
  - Umbilical hernia [Unknown]
  - Vomiting [Unknown]
  - Dehydration [Unknown]
  - Delusion [Unknown]
  - Muscle mass [Unknown]
  - Rectal polyp [Unknown]
  - Lip swelling [Unknown]
  - Oropharyngeal pain [Unknown]
  - Varicella [Unknown]
  - Dyspnoea [Unknown]
  - Gastrointestinal haemorrhage [Unknown]
  - Tricuspid valve incompetence [Unknown]
  - Osteonecrosis of jaw [Unknown]
  - Anaemia [Unknown]
  - Erythema [Unknown]
  - Muscle swelling [Unknown]
  - Diarrhoea [Unknown]
  - Dizziness [Unknown]
  - Mitral valve incompetence [Unknown]
  - Dysuria [Unknown]
  - Abdominal wall haematoma [Unknown]
  - Exostosis [Unknown]
  - Calculus urinary [Unknown]
  - Scoliosis [Unknown]
  - Tenderness [Unknown]
  - Metastases to spine [Unknown]
  - Intervertebral disc protrusion [Unknown]
  - Pulmonary bulla [Unknown]
  - Asthenia [Unknown]
  - Bruxism [Unknown]
  - Loose tooth [Unknown]
  - Fall [Unknown]
  - Anxiety [Unknown]

NARRATIVE: CASE EVENT DATE: 2005
